FAERS Safety Report 6633849-5 (Version None)
Quarter: 2010Q1

REPORT INFORMATION
  Report Type: 
  Country: None (occurrence: None)
  Receive Date: 20100309
  Receipt Date: 20100223
  Transmission Date: 20100710
  Serious: Yes (Other)
  Sender: FDA-Public Use
  Company Number: 230036M10NLD

PATIENT
  Age: 45 Year
  Sex: Female
  Weight: 65 kg

DRUGS (8)
  1. REBIF [Suspect]
     Indication: MULTIPLE SCLEROSIS
     Dosage: SUBCUTANEOUS
     Route: 058
     Dates: start: 20050701
  2. CLONIDINE [Concomitant]
  3. PANTOPRAZOLE SODIUM [Concomitant]
  4. MOVICOLON (NULYTELY) [Concomitant]
  5. FOSAMAX [Concomitant]
  6. LYRICA [Concomitant]
  7. AROMASIN [Concomitant]
  8. SYMMETREL [Concomitant]

REACTIONS (4)
  - BREAST CANCER FEMALE [None]
  - INJECTION SITE ERYTHEMA [None]
  - INJECTION SITE REACTION [None]
  - UTERINE POLYP [None]
